FAERS Safety Report 21175708 (Version 1)
Quarter: 2022Q3

REPORT INFORMATION
  Report Type: Other
  Country: DK (occurrence: DK)
  Receive Date: 20220805
  Receipt Date: 20220805
  Transmission Date: 20221027
  Serious: Yes (Hospitalization)
  Sender: FDA-Public Use
  Company Number: DK-TOLMAR, INC.-22DK035537

PATIENT
  Age: 72 Year
  Sex: Male
  Weight: 105 kg

DRUGS (6)
  1. ELIGARD [Suspect]
     Active Substance: LEUPROLIDE ACETATE
     Indication: Prostate cancer
     Dosage: 22.5 MILLIGRAM, Q 3 MONTH
     Route: 058
     Dates: start: 20180418, end: 20181220
  2. ENZALUTAMIDE [Suspect]
     Active Substance: ENZALUTAMIDE
     Indication: Prostate cancer
     Dosage: UNK, QD
     Route: 048
     Dates: start: 20180418, end: 20181220
  3. HYDROCHLOROTHIAZIDE\RAMIPRIL [Concomitant]
     Active Substance: HYDROCHLOROTHIAZIDE\RAMIPRIL
     Indication: Hypertension
     Dosage: UNK
     Route: 048
     Dates: start: 20140813
  4. AMLODIPINE [Concomitant]
     Active Substance: AMLODIPINE BESYLATE
     Indication: Hypertension
     Dosage: UNK
     Route: 048
     Dates: start: 20141027
  5. UNIKALK SILVER [Concomitant]
     Indication: Prophylaxis
     Dosage: UNK
     Route: 048
     Dates: start: 20180418
  6. DEXIBUPROFEN [Concomitant]
     Active Substance: DEXIBUPROFEN
     Indication: Myalgia
     Dosage: UNK
     Route: 048
     Dates: start: 20181005

REACTIONS (2)
  - Second primary malignancy [Not Recovered/Not Resolved]
  - Penile cancer [Not Recovered/Not Resolved]

NARRATIVE: CASE EVENT DATE: 20181203
